FAERS Safety Report 9871407 (Version 1)
Quarter: 2014Q1

REPORT INFORMATION
  Report Type: Spontaneous
  Country: CH (occurrence: CH)
  Receive Date: 20140205
  Receipt Date: 20140205
  Transmission Date: 20141002
  Serious: Yes (Other)
  Sender: FDA-Public Use
  Company Number: CH-BAYER-2014-013161

PATIENT
  Sex: Female

DRUGS (20)
  1. NIFEDIPINE [Suspect]
     Route: 064
  2. NIFEDIPINE [Suspect]
     Route: 064
  3. BETAMETHASONE [Concomitant]
     Route: 064
  4. BETAMETHASONE [Concomitant]
     Route: 064
  5. INDOMETHACIN [Concomitant]
     Route: 064
  6. INDOMETHACIN [Concomitant]
     Route: 064
  7. INDOMETHACIN [Concomitant]
     Route: 064
  8. INDOMETHACIN [Concomitant]
     Route: 064
  9. DESFLURANE [Concomitant]
     Route: 064
  10. DESFLURANE [Concomitant]
     Route: 064
  11. REMIFENTANIL [Concomitant]
  12. REMIFENTANIL [Concomitant]
  13. RINGER LACTATE [CACL DIHYDR,LACTIC AC,KCL,NACL,NA+ HYDROX] [Concomitant]
     Route: 012
  14. RINGER LACTATE [CACL DIHYDR,LACTIC AC,KCL,NACL,NA+ HYDROX] [Concomitant]
     Route: 012
  15. CEFTRIAXONE [Concomitant]
     Route: 012
  16. CEFTRIAXONE [Concomitant]
     Route: 012
  17. MAGNESIUM [Concomitant]
     Route: 064
  18. MAGNESIUM [Concomitant]
     Route: 064
  19. HEPARIN [Concomitant]
     Route: 064
  20. HEPARIN [Concomitant]
     Route: 064

REACTIONS (3)
  - Premature baby [None]
  - Low birth weight baby [None]
  - Foetal exposure during pregnancy [None]
